FAERS Safety Report 5318419-3 (Version None)
Quarter: 2007Q2

REPORT INFORMATION
  Report Type: 
  Country: None (occurrence: None)
  Receive Date: 20070507
  Receipt Date: 20070418
  Transmission Date: 20071010
  Serious: Yes (Life-Threatening, Hospitalization, Other)
  Sender: FDA-Public Use
  Company Number: ES-MERCK-0703ESP00024

PATIENT
  Age: 8 Month
  Sex: Female
  Weight: 7 kg

DRUGS (5)
  1. SINGULAIR [Suspect]
     Indication: ASTHMA
     Route: 048
     Dates: start: 20061006, end: 20061104
  2. SINGULAIR [Suspect]
     Indication: BRONCHIOLITIS
     Route: 048
     Dates: start: 20061006, end: 20061104
  3. TERBUTALINE SULFATE [Concomitant]
     Indication: ASTHMATIC CRISIS
     Route: 048
     Dates: start: 20061020, end: 20061024
  4. PREDNISOLONE STEAGLATE [Concomitant]
     Indication: ASTHMATIC CRISIS
     Route: 048
     Dates: start: 20061024, end: 20061029
  5. ALBUTEROL [Concomitant]
     Indication: ASTHMATIC CRISIS
     Dates: start: 20061024, end: 20061029

REACTIONS (4)
  - ASTHMATIC CRISIS [None]
  - DIARRHOEA [None]
  - HAEMOLYTIC URAEMIC SYNDROME [None]
  - TONIC CONVULSION [None]
